FAERS Safety Report 4343849-6 (Version None)
Quarter: 2004Q2

REPORT INFORMATION
  Report Type: 
  Country: None (occurrence: None)
  Receive Date: 20040419
  Receipt Date: 20040405
  Transmission Date: 20050107
  Serious: No
  Sender: FDA-Public Use
  Company Number: 2004CG00717

PATIENT

DRUGS (1)
  1. ATACAND [Suspect]

REACTIONS (1)
  - PEMPHIGOID [None]
